FAERS Safety Report 8188537-3 (Version None)
Quarter: 2012Q1

REPORT INFORMATION
  Report Type: 
  Country: None (occurrence: None)
  Receive Date: 20120306
  Receipt Date: 20120301
  Transmission Date: 20120608
  Serious: Yes (Other)
  Sender: FDA-Public Use
  Company Number: PHHY2012JP018620

PATIENT
  Age: 85 Year
  Sex: Male

DRUGS (2)
  1. LEUPROLIDE ACETATE [Concomitant]
     Dosage: UNK UKN, UNK
     Route: 065
  2. ZOMETA [Suspect]
     Indication: METASTASES TO BONE
     Dosage: 4 MG PER ADMINISTRATION
     Route: 041
     Dates: start: 20080401

REACTIONS (4)
  - ORAL TORUS [None]
  - INFECTION [None]
  - BONE PAIN [None]
  - OSTEONECROSIS OF JAW [None]
